FAERS Safety Report 18704485 (Version 1)
Quarter: 2021Q1

REPORT INFORMATION
  Report Type: Spontaneous
  Country: NL (occurrence: NL)
  Receive Date: 20210106
  Receipt Date: 20210106
  Transmission Date: 20210419
  Serious: Yes (Other)
  Sender: FDA-Public Use
  Company Number: NL-TEVA-2020-NL-1864344

PATIENT
  Age: 71 Year
  Sex: Male
  Weight: 94 kg

DRUGS (2)
  1. DILTIAZEM CAPSULE MGA 180MG / BRAND NAME NOT SPECIFIED [Concomitant]
     Dosage: MODIFIED?RELEASE CAPSULE, 180 MG, THERAPY START DATE ASKU, THERAPY END DATE ASKU
  2. SIMVASTATINE TABLET FO 20MG / BRAND NAME NOT SPECIFIED [Suspect]
     Active Substance: SIMVASTATIN
     Indication: HYPERCHOLESTEROLAEMIA
     Dosage: 20 MG
     Dates: start: 20201117, end: 20201202

REACTIONS (5)
  - Muscular weakness [Not Recovered/Not Resolved]
  - Choking [Unknown]
  - Balance disorder [Unknown]
  - Gait disturbance [Unknown]
  - Bowel movement irregularity [Unknown]

NARRATIVE: CASE EVENT DATE: 20201125
